FAERS Safety Report 12268214 (Version 1)
Quarter: 2016Q2

REPORT INFORMATION
  Report Type: Spontaneous
  Country: US (occurrence: US)
  Receive Date: 20160414
  Receipt Date: 20160414
  Transmission Date: 20160815
  Serious: Yes (Other)
  Sender: FDA-Public Use
  Company Number: US-MDT-ADR-2016-00680

PATIENT
  Age: 33 Year
  Sex: Female

DRUGS (1)
  1. LIORESAL [Suspect]
     Active Substance: BACLOFEN
     Indication: MUSCLE SPASTICITY
     Dosage: 276.4 MCG PER DAY
     Route: 037

REACTIONS (5)
  - Muscle tightness [Unknown]
  - Urinary tract infection [Unknown]
  - Viral infection [Unknown]
  - Drug hypersensitivity [Unknown]
  - Malaise [Unknown]

NARRATIVE: CASE EVENT DATE: 201603
